FAERS Safety Report 19146912 (Version 2)
Quarter: 2022Q1

REPORT INFORMATION
  Report Type: Report from Study
  Country: CN (occurrence: None)
  Receive Date: 20210416
  Receipt Date: 20220107
  Transmission Date: 20220423
  Serious: Yes (Hospitalization)
  Sender: FDA-Public Use
  Company Number: 2021A296781

PATIENT
  Age: 21356 Day
  Sex: Male

DRUGS (65)
  1. DURVALUMAB [Suspect]
     Active Substance: DURVALUMAB
     Indication: Transitional cell carcinoma
     Dosage: 1500.0 MG EVERY THREE WEEKS
     Route: 042
     Dates: start: 20210415, end: 20210415
  2. DURVALUMAB [Suspect]
     Active Substance: DURVALUMAB
     Indication: Transitional cell carcinoma
     Dosage: 1500.0 MG EVERY THREE WEEKS
     Route: 042
     Dates: start: 20210506, end: 20210506
  3. DURVALUMAB [Suspect]
     Active Substance: DURVALUMAB
     Indication: Transitional cell carcinoma
     Dosage: 1500.0 MG EVERY THREE WEEKS
     Route: 042
     Dates: start: 20210527, end: 20210527
  4. DURVALUMAB [Suspect]
     Active Substance: DURVALUMAB
     Indication: Transitional cell carcinoma
     Dosage: 1500.0 MG EVERY THREE WEEKS
     Route: 042
     Dates: start: 20210624, end: 20210624
  5. DURVALUMAB [Suspect]
     Active Substance: DURVALUMAB
     Indication: Transitional cell carcinoma
     Dosage: 1500.0 MG EVERY THREE WEEKS
     Route: 042
     Dates: start: 20210723, end: 20210723
  6. DURVALUMAB [Suspect]
     Active Substance: DURVALUMAB
     Indication: Transitional cell carcinoma
     Dosage: 1500.0 MG EVERY THREE WEEKS
     Route: 042
     Dates: start: 20210119, end: 20210119
  7. DURVALUMAB [Suspect]
     Active Substance: DURVALUMAB
     Indication: Transitional cell carcinoma
     Dosage: 1500.0 MG EVERY FOUR WEEKS
     Route: 042
     Dates: start: 20210209, end: 20210209
  8. DURVALUMAB [Suspect]
     Active Substance: DURVALUMAB
     Indication: Transitional cell carcinoma
     Dosage: 1500.0 MG EVERY FOUR WEEKS
     Route: 042
     Dates: start: 20210303, end: 20210303
  9. DURVALUMAB [Suspect]
     Active Substance: DURVALUMAB
     Indication: Transitional cell carcinoma
     Dosage: 1500.0 MG EVERY FOUR WEEKS
     Route: 042
     Dates: start: 20210324, end: 20210324
  10. DURVALUMAB [Suspect]
     Active Substance: DURVALUMAB
     Indication: Transitional cell carcinoma
     Dosage: 1500.0 MG EVERY FOUR WEEKS
     Route: 042
     Dates: start: 20211009, end: 20211009
  11. DURVALUMAB [Suspect]
     Active Substance: DURVALUMAB
     Indication: Transitional cell carcinoma
     Dosage: 1500.0 MG EVERY FOUR WEEKS
     Route: 042
     Dates: start: 20211105, end: 20211105
  12. DURVALUMAB [Suspect]
     Active Substance: DURVALUMAB
     Indication: Transitional cell carcinoma
     Dosage: 1500.0 MG EVERY FOUR WEEKS
     Route: 042
     Dates: start: 20211217, end: 20211217
  13. CISPLATIN [Suspect]
     Active Substance: CISPLATIN
     Indication: Transitional cell carcinoma
     Dosage: 65.3 MG/M2 EVERY THREE WEEKS
     Route: 042
     Dates: start: 20210415, end: 20210416
  14. CISPLATIN [Suspect]
     Active Substance: CISPLATIN
     Indication: Transitional cell carcinoma
     Dosage: 65.3 MG/M2 EVERY THREE WEEKS
     Route: 042
     Dates: start: 20210506, end: 20210507
  15. CISPLATIN [Suspect]
     Active Substance: CISPLATIN
     Indication: Transitional cell carcinoma
     Dosage: 65.7 MG/M2 EVERY THREE WEEKS
     Route: 042
     Dates: start: 20210119, end: 20210120
  16. CISPLATIN [Suspect]
     Active Substance: CISPLATIN
     Indication: Transitional cell carcinoma
     Dosage: 65.0 MG/M2 EVERY THREE WEEKS
     Route: 042
     Dates: start: 20210209, end: 20210210
  17. CISPLATIN [Suspect]
     Active Substance: CISPLATIN
     Indication: Transitional cell carcinoma
     Dosage: 64.4 MG/M2 EVERY THREE WEEKS
     Route: 042
     Dates: start: 20210303, end: 20210303
  18. CISPLATIN [Suspect]
     Active Substance: CISPLATIN
     Indication: Transitional cell carcinoma
     Dosage: 65.0 MG/M2 EVERY THREE WEEKS
     Route: 042
     Dates: start: 20210324, end: 20210325
  19. GEMCITABINE [Suspect]
     Active Substance: GEMCITABINE
     Indication: Transitional cell carcinoma
     Dosage: 954.8 MG/M2 EVERY THREE WEEKS
     Route: 042
     Dates: start: 20210415, end: 20210415
  20. GEMCITABINE [Suspect]
     Active Substance: GEMCITABINE
     Indication: Transitional cell carcinoma
     Dosage: 954.7 MG/M2 EVERY THREE WEEKS
     Route: 042
     Dates: start: 20210422, end: 20210422
  21. GEMCITABINE [Suspect]
     Active Substance: GEMCITABINE
     Indication: Transitional cell carcinoma
     Dosage: 954.8 MG/M2 EVERY THREE WEEKS
     Route: 042
     Dates: start: 20210506, end: 20210506
  22. GEMCITABINE [Suspect]
     Active Substance: GEMCITABINE
     Indication: Transitional cell carcinoma
     Dosage: 954.7 MG/M2 EVERY THREE WEEKS
     Route: 042
     Dates: start: 20210513, end: 20210513
  23. GEMCITABINE [Suspect]
     Active Substance: GEMCITABINE
     Indication: Transitional cell carcinoma
     Dosage: 960.0 MG/M2 EVERY THREE WEEKS
     Route: 042
     Dates: start: 20210119, end: 20210119
  24. GEMCITABINE [Suspect]
     Active Substance: GEMCITABINE
     Indication: Transitional cell carcinoma
     Dosage: 964.5 MG/M2 EVERY THREE WEEKS
     Route: 042
     Dates: start: 20210127, end: 20210127
  25. GEMCITABINE [Suspect]
     Active Substance: GEMCITABINE
     Indication: Transitional cell carcinoma
     Dosage: 950.0 MG/M2 EVERY THREE WEEKS
     Route: 042
     Dates: start: 20210209, end: 20210209
  26. GEMCITABINE [Suspect]
     Active Substance: GEMCITABINE
     Indication: Transitional cell carcinoma
     Dosage: 950.0 MG/M2 EVERY THREE WEEKS
     Route: 042
     Dates: start: 20210216, end: 20210216
  27. GEMCITABINE [Suspect]
     Active Substance: GEMCITABINE
     Indication: Transitional cell carcinoma
     Dosage: 940.6 MG/M2 EVERY THREE WEEKS
     Route: 042
     Dates: start: 20210303, end: 20210303
  28. GEMCITABINE [Suspect]
     Active Substance: GEMCITABINE
     Indication: Transitional cell carcinoma
     Dosage: 940.6 MG/M2 EVERY THREE WEEKS
     Route: 042
     Dates: start: 20210310, end: 20210310
  29. GEMCITABINE [Suspect]
     Active Substance: GEMCITABINE
     Indication: Transitional cell carcinoma
     Dosage: 950.0 MG/M2 EVERY THREE WEEKS
     Route: 042
     Dates: start: 20210324, end: 20210324
  30. GEMCITABINE [Suspect]
     Active Substance: GEMCITABINE
     Indication: Transitional cell carcinoma
     Dosage: 950.0 MG/M2 EVERY THREE WEEKS
     Route: 042
     Dates: start: 20210331, end: 20210331
  31. ONDANSETRON HYDROCHLORIDE INJECTION [Concomitant]
     Indication: Vomiting
     Dosage: 8.00 MG ONCE/SINGLE ADMINISTRATION
     Route: 042
     Dates: start: 20210324, end: 20210324
  32. ONDANSETRON HYDROCHLORIDE INJECTION [Concomitant]
     Indication: Vomiting
     Dosage: 8.00 MG ONCE/SINGLE ADMINISTRATION
     Route: 042
     Dates: start: 20210331, end: 20210331
  33. METOPROLOL TARTRATE [Concomitant]
     Active Substance: METOPROLOL TARTRATE
     Indication: Angina pectoris
     Dosage: 6.00 MG BID
     Route: 048
     Dates: start: 202012
  34. PALONOSETRON HYDROCHLORIDE CAPSULES [Concomitant]
     Indication: Vomiting
     Dosage: 0.50 MG ONCE/SINGLE ADMINISTRATION
     Route: 048
     Dates: start: 20210324, end: 20210324
  35. NIFEDIPINE CONTROLLED-RELEASE TABLETS [Concomitant]
     Indication: Hypertension
     Dosage: 30.00 MG QD
     Route: 048
     Dates: start: 2019
  36. HEPARIN SODIUM [Concomitant]
     Active Substance: HEPARIN SODIUM
     Indication: Thrombosis
     Dosage: 100.00 IU QD
     Route: 042
     Dates: start: 20210303, end: 20210311
  37. HEPARIN SODIUM [Concomitant]
     Active Substance: HEPARIN SODIUM
     Indication: Thrombosis
     Dosage: 100.00 IU QD
     Route: 042
     Dates: start: 20210303, end: 20210311
  38. HEPARIN SODIUM [Concomitant]
     Active Substance: HEPARIN SODIUM
     Indication: Thrombosis
     Dosage: 100.00 IU QD
     Route: 042
     Dates: start: 20210324, end: 20210401
  39. HEPARIN SODIUM [Concomitant]
     Active Substance: HEPARIN SODIUM
     Indication: Thrombosis
     Dosage: 100.00 IU QD
     Route: 042
     Dates: start: 20210324, end: 20210401
  40. FOSFOMYCIN TROMETAMOL GRANULES [Concomitant]
     Indication: Urinary tract infection
     Dosage: 3.00 G ONCE/SINGLE ADMINISTRATION
     Route: 048
     Dates: start: 20210324, end: 20210324
  41. METOCLOPRAMIDE DIHYDROCHLORIDE INJECTION [Concomitant]
     Indication: Vomiting
     Dosage: 10.00 MG ONCE/SINGLE ADMINISTRATION
     Route: 030
     Dates: start: 20210324, end: 20210324
  42. METOCLOPRAMIDE DIHYDROCHLORIDE INJECTION [Concomitant]
     Indication: Vomiting
     Dosage: 10.00 MG QD
     Route: 030
     Dates: start: 20210331, end: 20210331
  43. METOCLOPRAMIDE DIHYDROCHLORIDE INJECTION [Concomitant]
     Indication: Vomiting
     Dosage: 10.00 MG QD
     Route: 030
     Dates: start: 20210325, end: 20210327
  44. INSULIN NOS [Concomitant]
     Active Substance: INSULIN NOS
     Indication: Diabetes mellitus
     Dosage: 18.00 U QD
     Route: 042
     Dates: start: 20210303, end: 20210311
  45. INSULIN NOS [Concomitant]
     Active Substance: INSULIN NOS
     Indication: Diabetes mellitus
     Dosage: 18.00 U QD
     Route: 042
     Dates: start: 20210303, end: 20210311
  46. TORSAEMIDE FOR INJECTION [Concomitant]
     Indication: Sodium retention
     Dosage: 20.00 MG ONCE/SINGLE ADMINISTRATION
     Route: 042
     Dates: start: 20210324, end: 20210324
  47. MANNITOL INJECTION [Concomitant]
     Indication: Sodium retention
     Dosage: 125.00 ML ONCE/SINGLE ADMINISTRATION
     Route: 042
     Dates: start: 20210324, end: 20210324
  48. LACTATED RINGERS SOLUTION [Concomitant]
     Active Substance: CALCIUM CHLORIDE\POTASSIUM CHLORIDE\SODIUM CHLORIDE\SODIUM LACTATE
     Indication: Electrolyte imbalance
     Dosage: 500.00 ML ONCE/SINGLE ADMINISTRATION
     Route: 042
     Dates: start: 20210324, end: 20210324
  49. ROXATIDINE ACETATE HYDROCHLORIDE FOR INJECTION [Concomitant]
     Indication: Gastric ulcer
     Dosage: 75.00 MG ONCE/SINGLE ADMINISTRATION
     Route: 042
     Dates: start: 20210310, end: 20210310
  50. ROXATIDINE ACETATE HYDROCHLORIDE FOR INJECTION [Concomitant]
     Indication: Gastric ulcer
     Dosage: 75.00 MG QD
     Route: 042
     Dates: start: 20210324, end: 20210325
  51. ROXATIDINE ACETATE HYDROCHLORIDE FOR INJECTION [Concomitant]
     Indication: Gastric ulcer
     Dosage: 75.00 MG ONCE/SINGLE ADMINISTRATION
     Route: 042
     Dates: start: 20210331, end: 20210331
  52. POTASSIUM CHLORIDE [Concomitant]
     Active Substance: POTASSIUM CHLORIDE
     Indication: Electrolyte imbalance
     Dosage: 1.50 G QD
     Route: 042
     Dates: start: 20210303, end: 20210311
  53. POTASSIUM CHLORIDE [Concomitant]
     Active Substance: POTASSIUM CHLORIDE
     Indication: Electrolyte imbalance
     Dosage: 1.50 G QD
     Route: 042
     Dates: start: 20210324, end: 20210331
  54. 50% GLUCOSE INJECTION [Concomitant]
     Indication: Electrolyte substitution therapy
     Dosage: 50.00 ML QD
     Route: 042
     Dates: start: 20210303, end: 20210311
  55. ASCORBIC ACID [Concomitant]
     Active Substance: ASCORBIC ACID
     Indication: Vitamin C deficiency
     Dosage: 2.00 G QD
     Route: 042
     Dates: start: 20210303, end: 20210311
  56. ASCORBIC ACID [Concomitant]
     Active Substance: ASCORBIC ACID
     Indication: Vitamin C deficiency
     Dosage: 2.00 G QD
     Route: 042
     Dates: start: 20210324, end: 20210331
  57. VITAMIN B6 [Concomitant]
     Active Substance: PYRIDOXINE HYDROCHLORIDE
     Indication: Vitamin B6 deficiency
     Dosage: 0.10 G QD
     Route: 042
     Dates: start: 20210303, end: 20210311
  58. VITAMIN B6 [Concomitant]
     Active Substance: PYRIDOXINE HYDROCHLORIDE
     Indication: Sodium retention
     Dosage: 0.10 G QD
     Route: 042
     Dates: start: 20210303, end: 20210311
  59. VITAMIN B6 [Concomitant]
     Active Substance: PYRIDOXINE HYDROCHLORIDE
     Indication: Vitamin B6 deficiency
     Dosage: 0.10 G QD
     Route: 042
     Dates: start: 20210324, end: 20210331
  60. VITAMIN B6 [Concomitant]
     Active Substance: PYRIDOXINE HYDROCHLORIDE
     Indication: Sodium retention
     Dosage: 0.10 G QD
     Route: 042
     Dates: start: 20210324, end: 20210331
  61. PEGYLATED RECOMBINANT HUMAN GRANULOCYTE COLONY-STIMULATING FACTOR I... [Concomitant]
     Indication: White blood cell count decreased
     Dosage: 3.00 MG ONCE/SINGLE ADMINISTRATION
     Route: 058
     Dates: start: 20210401, end: 20210401
  62. LACTULOSE [Concomitant]
     Active Substance: LACTULOSE
     Indication: Diarrhoea
     Dosage: 200.00 ML ONCE/SINGLE ADMINISTRATION
     Route: 048
     Dates: start: 20210329, end: 20210329
  63. RECOMBINANT HUMAN GRANULOCYTE COLONY STIMULATING FACTOR INJECTION [Concomitant]
     Indication: White blood cell count decreased
     Dosage: 150.00 UG ONCE/SINGLE ADMINISTRATION
     Route: 058
     Dates: start: 20210330, end: 20210330
  64. TROPISETRON HYDROCHLORIDE INJECTION [Concomitant]
     Indication: Nausea
     Dosage: 100.00 ML ONCE/SINGLE ADMINISTRATION
     Route: 042
     Dates: start: 20210310, end: 20210310
  65. WEN XIN KE LI [Concomitant]
     Indication: Ventricular extrasystoles
     Dates: start: 20210110

REACTIONS (1)
  - Myelosuppression [Recovered/Resolved]

NARRATIVE: CASE EVENT DATE: 20210406
